FAERS Safety Report 8614401-9 (Version None)
Quarter: 2012Q3

REPORT INFORMATION
  Report Type: 
  Country: None (occurrence: None)
  Receive Date: 20120823
  Receipt Date: 20120820
  Transmission Date: 20120928
  Serious: No
  Sender: FDA-Public Use
  Company Number: US-BAYER-2012-086255

PATIENT
  Age: 32 Year
  Sex: Female

DRUGS (1)
  1. GADAVIST [Suspect]
     Indication: PRODUCT USED FOR UNKNOWN INDICATION
     Dosage: 5 ML, ONCE
     Dates: start: 20120814, end: 20120814

REACTIONS (7)
  - URTICARIA [None]
  - PARAESTHESIA [None]
  - PRURITUS [None]
  - OEDEMA PERIPHERAL [None]
  - CHEST PAIN [None]
  - PAIN IN EXTREMITY [None]
  - ERYTHEMA [None]
